FAERS Safety Report 8784466 (Version 2)
Quarter: 2012Q4

REPORT INFORMATION
  Report Type: 
  Country: US (occurrence: US)
  Receive Date: 20120913
  Receipt Date: 20121212
  Transmission Date: 20130627
  Serious: Yes (Other)
  Sender: FDA-Public Use
  Company Number: US-PFIZER INC-2012223905

PATIENT
  Age: 45 Year
  Sex: Male
  Weight: 99.77 kg

DRUGS (3)
  1. LIPITOR [Suspect]
     Indication: BLOOD CHOLESTEROL INCREASED
     Dosage: 80 mg, daily
     Route: 048
     Dates: start: 2004
  2. LIPITOR [Suspect]
     Indication: LIPIDS INCREASED
  3. ETODOLAC [Suspect]
     Indication: RHEUMATOID ARTHRITIS
     Dosage: 500 mg, daily

REACTIONS (3)
  - Rheumatoid arthritis [Not Recovered/Not Resolved]
  - Abdominal discomfort [Unknown]
  - Drug administration error [Unknown]
